FAERS Safety Report 9895241 (Version 1)
Quarter: 2014Q1

REPORT INFORMATION
  Report Type: Spontaneous
  Country: US (occurrence: US)
  Receive Date: 20140213
  Receipt Date: 20140213
  Transmission Date: 20141002
  Serious: No
  Sender: FDA-Public Use
  Company Number: US-BRISTOL-MYERS SQUIBB COMPANY-17268632

PATIENT
  Age: 70 Year
  Sex: Male

DRUGS (2)
  1. ABATACEPT SUBQ INJECTION 125MG/ML [Suspect]
     Dosage: DATE OF LAST  INJECTION:  ^ABOUT 6-7 WEEKS AGO
     Route: 058
  2. METHOTREXATE [Concomitant]

REACTIONS (1)
  - Cough [Unknown]
